FAERS Safety Report 4450202-3 (Version None)
Quarter: 2004Q3

REPORT INFORMATION
  Report Type: 
  Country: None (occurrence: None)
  Receive Date: 20040914
  Receipt Date: 20040830
  Transmission Date: 20050211
  Serious: Yes (Disabling)
  Sender: FDA-Public Use
  Company Number: S04-GER-00523-01

PATIENT
  Age: 43 Year
  Sex: Male

DRUGS (2)
  1. CIPRALEX (ESCITALOPRAM) [Suspect]
     Indication: DEPRESSION
     Dosage: 20 MG QD PO
     Route: 048
     Dates: start: 20031217, end: 20040101
  2. REMERGIL (MIRTAZAPINE) [Concomitant]

REACTIONS (1)
  - PERONEAL NERVE PALSY [None]
